FAERS Safety Report 12485615 (Version 2)
Quarter: 2016Q2

REPORT INFORMATION
  Report Type: Report from Study
  Country: CA (occurrence: CA)
  Receive Date: 20160621
  Receipt Date: 20160624
  Transmission Date: 20160815
  Serious: Yes (Hospitalization)
  Sender: FDA-Public Use
  Company Number: CA-JNJFOC-20160613057

PATIENT
  Age: 55 Year
  Sex: Male
  Weight: 123 kg

DRUGS (1)
  1. REMICADE [Suspect]
     Active Substance: INFLIXIMAB
     Indication: CROHN^S DISEASE
     Route: 042
     Dates: start: 20130705

REACTIONS (4)
  - Diarrhoea [Unknown]
  - Therapeutic response decreased [Unknown]
  - Gastritis [Recovering/Resolving]
  - Food poisoning [Recovering/Resolving]

NARRATIVE: CASE EVENT DATE: 201605
